FAERS Safety Report 5919015-7 (Version None)
Quarter: 2008Q4

REPORT INFORMATION
  Report Type: 
  Country: None (occurrence: None)
  Receive Date: 20081015
  Receipt Date: 20081006
  Transmission Date: 20090506
  Serious: Yes (Other)
  Sender: FDA-Public Use
  Company Number: NO-ASTRAZENECA-2008SE04684

PATIENT
  Age: 33 Year
  Sex: Female

DRUGS (2)
  1. SEROQUEL [Suspect]
  2. ABILIFY [Suspect]

REACTIONS (3)
  - IMPULSIVE BEHAVIOUR [None]
  - RESTLESSNESS [None]
  - SUICIDAL IDEATION [None]
